FAERS Safety Report 7023298-2 (Version None)
Quarter: 2010Q3

REPORT INFORMATION
  Report Type: 
  Country: None (occurrence: None)
  Receive Date: 20100916
  Receipt Date: 20100603
  Transmission Date: 20110219
  Serious: No
  Sender: FDA-Public Use
  Company Number: DKLU1062811

PATIENT
  Age: 60 Year
  Sex: Male

DRUGS (1)
  1. SABRIL [Suspect]
     Indication: CONVULSION
     Dosage: 1000 MG MILLIGRAM(S), 1 IN 1 D, ORAL; 1500 MG MILLIGRAM(S), 1 IN 1 D, ORAL
     Route: 048
     Dates: start: 20100401

REACTIONS (1)
  - CRYING [None]
